FAERS Safety Report 22049604 (Version 1)
Quarter: 2023Q1

REPORT INFORMATION
  Report Type: Spontaneous
  Country: US (occurrence: None)
  Receive Date: 20230228
  Receipt Date: 20230228
  Transmission Date: 20230417
  Serious: Yes (Hospitalization)
  Sender: FDA-Public Use
  Company Number: None

PATIENT
  Age: 76 Year
  Sex: Female

DRUGS (6)
  1. TACROLIMUS [Suspect]
     Active Substance: TACROLIMUS
     Indication: Prophylaxis against transplant rejection
     Dosage: FREQUENCY : TWICE A DAY;?
     Route: 048
     Dates: start: 20230217
  2. MYCOPHENOLIC ACID [Suspect]
     Active Substance: MYCOPHENOLIC ACID
     Indication: Prophylaxis against transplant rejection
     Dosage: FREQUENCY : TWICE A DAY;?
     Route: 048
     Dates: start: 20230217
  3. PREDNISONE [Concomitant]
     Active Substance: PREDNISONE
     Dates: start: 20230217
  4. ASPIRIN [Concomitant]
     Active Substance: ASPIRIN
     Dates: start: 20230217
  5. Sulfamethoxazole/Trimethoprim 400-80mg [Concomitant]
     Dates: start: 20230217
  6. VALACYCLOVIR HYDROCHLORIDE [Concomitant]
     Active Substance: VALACYCLOVIR HYDROCHLORIDE
     Dates: start: 20230217

REACTIONS (2)
  - Infection [None]
  - Fluid retention [None]

NARRATIVE: CASE EVENT DATE: 20230224
